FAERS Safety Report 8215084-2 (Version None)
Quarter: 2012Q1

REPORT INFORMATION
  Report Type: 
  Country: None (occurrence: None)
  Receive Date: 20120316
  Receipt Date: 20120308
  Transmission Date: 20120608
  Serious: Yes (Other)
  Sender: FDA-Public Use
  Company Number: GXKR2012DE001097

PATIENT

DRUGS (5)
  1. MIRTAZAPINE [Suspect]
     Dosage: DAILY DOSE: 7.5 MG MILLIGRAM(S) EVERY DAY
     Route: 048
     Dates: start: 20120105
  2. SERTRALINE HYDROCHLORIDE [Suspect]
     Dosage: DAILY DOSE: 100 MG MILLIGRAM(S) EVERY DAY
     Route: 048
     Dates: start: 20120106
  3. VENLAFAXINE HYDROCHLORIDE [Suspect]
     Dosage: DAILY DOSE: 75 MG MILLIGRAM(S) EVERY DAY
     Route: 048
     Dates: start: 20111229, end: 20120104
  4. SERTRALINE HYDROCHLORIDE [Suspect]
     Dosage: DAILY DOSE: 50 MG MILLIGRAM(S) EVERY DAY
     Route: 048
     Dates: start: 20111229, end: 20120105
  5. MIRTAZAPINE [Suspect]
     Dosage: DAILY DOSE: 15 MG MILLIGRAM(S) EVERY DAY
     Route: 048
     Dates: start: 20120103, end: 20120104

REACTIONS (2)
  - EPISTAXIS [None]
  - HAEMORRHAGIC DISORDER [None]
